FAERS Safety Report 9189216 (Version 1)
Quarter: 2013Q1

REPORT INFORMATION
  Report Type: Spontaneous
  Country: US (occurrence: None)
  Receive Date: 20130321
  Receipt Date: 20130321
  Transmission Date: 20140127
  Serious: No
  Sender: FDA-Public Use
  Company Number: None

PATIENT
  Age: 75 Year
  Sex: Male
  Weight: 82.2 kg

DRUGS (1)
  1. DABIGATRAN [Suspect]
     Indication: ATRIAL FIBRILLATION
     Dosage: 150 MG  EVERY DAY PO
     Route: 048
     Dates: start: 20121217, end: 20130301

REACTIONS (5)
  - Dyspepsia [None]
  - Pain [None]
  - Dysphagia [None]
  - Dyspepsia [None]
  - No therapeutic response [None]
